FAERS Safety Report 9733021 (Version 2)
Quarter: 2013Q4

REPORT INFORMATION
  Report Type: Spontaneous
  Country: US (occurrence: US)
  Receive Date: 20131205
  Receipt Date: 20131205
  Transmission Date: 20140711
  Serious: Yes (Other)
  Sender: FDA-Public Use
  Company Number: US-BMSGILMSD-2009-0021686

PATIENT
  Sex: Male
  Weight: 99.34 kg

DRUGS (17)
  1. ATRIPLA [Suspect]
     Indication: HIV INFECTION
     Dates: start: 20080508
  2. BACTRIM DS [Concomitant]
     Indication: PNEUMOCYSTIS JIROVECII PNEUMONIA
     Route: 048
     Dates: start: 20080411, end: 20080424
  3. DAPSONE [Concomitant]
     Indication: ANTIFUNGAL PROPHYLAXIS
     Route: 048
     Dates: start: 20080501
  4. DIFLUCAN [Concomitant]
     Indication: CANDIDA INFECTION
     Route: 048
     Dates: start: 20080501, end: 20090630
  5. KLONOPIN [Concomitant]
     Indication: ANXIETY
     Route: 048
     Dates: start: 20080411
  6. NEURONTIN [Concomitant]
     Indication: NEUROPATHY PERIPHERAL
     Route: 048
     Dates: start: 20080701
  7. PROZAC [Concomitant]
     Route: 048
     Dates: start: 20080411
  8. REGLAN [Concomitant]
     Indication: NAUSEA
     Route: 048
     Dates: start: 20080411
  9. VALCYTE [Concomitant]
     Indication: CYTOMEGALOVIRUS VIRAEMIA
     Route: 048
     Dates: start: 20080411, end: 20080508
  10. MEPRON [Concomitant]
     Indication: ANTIFUNGAL PROPHYLAXIS
     Route: 048
     Dates: start: 20080424, end: 20080430
  11. IMODIUM [Concomitant]
     Indication: PROPHYLAXIS AGAINST DIARRHOEA
     Route: 048
  12. ZITROMAX [Concomitant]
     Indication: OPPORTUNISTIC INFECTION PROPHYLAXIS
     Route: 048
     Dates: start: 20081104, end: 20090127
  13. MEGA MEN [Concomitant]
  14. NITRIC OXIDE MAXIMIZER [Concomitant]
  15. SUPERPUMP 250 [Concomitant]
  16. ENERGY ENHANCER [Concomitant]
  17. SIZEON [Concomitant]

REACTIONS (1)
  - Therapeutic response decreased [Unknown]
